FAERS Safety Report 23484478 (Version 1)
Quarter: 2024Q1

REPORT INFORMATION
  Report Type: Spontaneous
  Country: US (occurrence: US)
  Receive Date: 20240206
  Receipt Date: 20240206
  Transmission Date: 20240409
  Serious: No
  Sender: FDA-Public Use
  Company Number: US-AMGEN-USASP2024020512

PATIENT
  Age: 59 Year
  Sex: Male

DRUGS (4)
  1. PROLIA [Suspect]
     Active Substance: DENOSUMAB
     Indication: Product used for unknown indication
     Dosage: UNK
     Route: 065
  2. DUPIXENT [Suspect]
     Active Substance: DUPILUMAB
     Indication: Asthma
     Dosage: 600 MILLIGRAM (SINGLE DOSE PREFILLED PEN)
     Route: 058
     Dates: start: 20221214
  3. DUPIXENT [Suspect]
     Active Substance: DUPILUMAB
     Dosage: 300 MILLIGRAM, Q2WK ((SINGLE DOSE PREFILLED PEN)
     Route: 058
     Dates: start: 20221230
  4. FORTEO [Concomitant]
     Active Substance: TERIPARATIDE

REACTIONS (2)
  - General physical health deterioration [Unknown]
  - Abscess oral [Unknown]

NARRATIVE: CASE EVENT DATE: 20230801
